FAERS Safety Report 26006498 (Version 1)
Quarter: 2025Q4

REPORT INFORMATION
  Report Type: Spontaneous
  Country: CN (occurrence: CN)
  Receive Date: 20251106
  Receipt Date: 20251106
  Transmission Date: 20260118
  Serious: Yes (Other)
  Sender: BRACCO
  Company Number: CN-BRACCO-2025CN07544

PATIENT
  Age: 37 Year
  Sex: Female

DRUGS (1)
  1. GADOBENATE DIMEGLUMINE [Suspect]
     Active Substance: GADOBENATE DIMEGLUMINE
     Indication: Magnetic resonance imaging abdominal
     Dosage: 12 MG, SINGLE
     Route: 042
     Dates: start: 20251024, end: 20251024

REACTIONS (4)
  - Palpitations [Recovered/Resolved]
  - Anxiety [Recovered/Resolved]
  - Electrocardiogram abnormal [Recovered/Resolved]
  - Rash [Recovered/Resolved]

NARRATIVE: CASE EVENT DATE: 20251024
